FAERS Safety Report 5105076-4 (Version None)
Quarter: 2006Q3

REPORT INFORMATION
  Report Type: 
  Country: None (occurrence: None)
  Receive Date: 20060911
  Receipt Date: 20060831
  Transmission Date: 20061208
  Serious: Yes (Hospitalization)
  Sender: FDA-Public Use
  Company Number: 235274K06USA

PATIENT
  Age: 40 Year
  Sex: Female

DRUGS (3)
  1. REBIF [Suspect]
     Indication: MULTIPLE SCLEROSIS
     Dosage: 22 MCG, 3 IN 1 WEEKS, SUBCUTANEOUS
     Route: 058
     Dates: start: 20030730
  2. TOPAMAX [Concomitant]
  3. KLONOPIN [Concomitant]

REACTIONS (7)
  - ANXIETY [None]
  - ASTHENIA [None]
  - CONVERSION DISORDER [None]
  - CRYING [None]
  - SCREAMING [None]
  - SOMNOLENCE [None]
  - TUNNEL VISION [None]
